FAERS Safety Report 5892798-0 (Version None)
Quarter: 2008Q3

REPORT INFORMATION
  Report Type: 
  Country: None (occurrence: None)
  Receive Date: 20080922
  Receipt Date: 20080922
  Transmission Date: 20090109
  Serious: No
  Sender: FDA-Public Use
  Company Number: None

PATIENT
  Age: 33 Year
  Sex: Female
  Weight: 65.7716 kg

DRUGS (2)
  1. KENALOG [Suspect]
     Indication: INFLUENZA
     Dosage: ONCE IM
     Route: 030
     Dates: start: 20080222, end: 20080222
  2. KENALOG [Suspect]
     Indication: LOWER RESPIRATORY TRACT INFECTION
     Dosage: ONCE IM
     Route: 030
     Dates: start: 20080222, end: 20080222

REACTIONS (7)
  - FATIGUE [None]
  - HEADACHE [None]
  - INJECTION SITE DISCOLOURATION [None]
  - INJECTION SITE PAIN [None]
  - INJECTION SITE REACTION [None]
  - NAUSEA [None]
  - SKIN ULCER [None]
